FAERS Safety Report 7444463-6 (Version None)
Quarter: 2011Q2

REPORT INFORMATION
  Report Type: 
  Country: None (occurrence: None)
  Receive Date: 20110427
  Receipt Date: 20110427
  Transmission Date: 20111010
  Serious: Yes (Other)
  Sender: FDA-Public Use
  Company Number: None

PATIENT
  Age: 42 Year
  Sex: Female
  Weight: 68.0396 kg

DRUGS (1)
  1. CLINDAMYCIN [Suspect]
     Indication: PREMEDICATION
     Dosage: 1 CAPSULE 3 TIMES/DAY PO
     Route: 048
     Dates: start: 20110424, end: 20110424

REACTIONS (3)
  - EYE SWELLING [None]
  - RASH [None]
  - SWELLING FACE [None]
